FAERS Safety Report 21833567 (Version 1)
Quarter: 2023Q1

REPORT INFORMATION
  Report Type: Spontaneous
  Country: US (occurrence: US)
  Receive Date: 20230107
  Receipt Date: 20230107
  Transmission Date: 20230417
  Serious: Yes (Death)
  Sender: FDA-Public Use
  Company Number: US-002147023-NVSC2023US003334

PATIENT
  Age: 59 Year
  Sex: Male

DRUGS (1)
  1. TAFINLAR [Suspect]
     Active Substance: DABRAFENIB MESYLATE
     Indication: Malignant melanoma
     Dosage: 150 MG, BID (BY MOUTH) (EVERY 12 HR)
     Route: 048
     Dates: start: 20210528

REACTIONS (1)
  - Death [Fatal]

NARRATIVE: CASE EVENT DATE: 20221223
